FAERS Safety Report 16343910 (Version 2)
Quarter: 2019Q2

REPORT INFORMATION
  Report Type: Spontaneous
  Country: JP (occurrence: JP)
  Receive Date: 20190522
  Receipt Date: 20190523
  Transmission Date: 20190711
  Serious: Yes (Death)
  Sender: FDA-Public Use
  Company Number: JP-009507513-1905JPN000206

PATIENT
  Age: 80 Year
  Sex: Female

DRUGS (1)
  1. FIDAXOMICIN [Suspect]
     Active Substance: FIDAXOMICIN
     Indication: ENTERITIS INFECTIOUS
     Dosage: 400 MG/DAY, UNKNOWN FREQ.
     Route: 048

REACTIONS (1)
  - Dysphagia [Fatal]
